FAERS Safety Report 6519818-4 (Version None)
Quarter: 2009Q4

REPORT INFORMATION
  Report Type: 
  Country: None (occurrence: None)
  Receive Date: 20091228
  Receipt Date: 20091228
  Transmission Date: 20100525
  Serious: Yes (Hospitalization)
  Sender: FDA-Public Use
  Company Number: None

PATIENT
  Age: 29 Year
  Sex: Male
  Weight: 91.173 kg

DRUGS (1)
  1. TOPIRAMATE [Suspect]
     Indication: CONVULSION
     Dosage: 25 MG 25MG AM 100MG PM PO
     Route: 048
     Dates: start: 20091109, end: 20091202

REACTIONS (7)
  - CONFUSIONAL STATE [None]
  - DISORIENTATION [None]
  - FATIGUE [None]
  - MEMORY IMPAIRMENT [None]
  - MUSCLE TWITCHING [None]
  - PRODUCT SUBSTITUTION ISSUE [None]
  - ROAD TRAFFIC ACCIDENT [None]
